FAERS Safety Report 6567853-2 (Version None)
Quarter: 2010Q1

REPORT INFORMATION
  Report Type: 
  Country: None (occurrence: None)
  Receive Date: 20100203
  Receipt Date: 20100125
  Transmission Date: 20100710
  Serious: Yes (Other)
  Sender: FDA-Public Use
  Company Number: US-JNJFOC-20091205206

PATIENT
  Sex: Male
  Weight: 90.72 kg

DRUGS (12)
  1. DURAGESIC-100 [Suspect]
     Indication: BACK PAIN
     Route: 062
     Dates: start: 20091117, end: 20091121
  2. DURAGESIC-100 [Suspect]
     Route: 062
  3. DURAGESIC-100 [Suspect]
     Route: 062
  4. DILAUDID [Concomitant]
     Indication: PAIN
     Dosage: HALF TABLET OF 8.0 MG PER ORAL TWICE A DAY (BID)
     Route: 048
  5. DILAUDID [Concomitant]
     Indication: BREAKTHROUGH PAIN
     Dosage: HALF TABLET OF 8.0 MG PER ORAL TWICE A DAY (BID)
     Route: 048
  6. LYRICA [Concomitant]
     Indication: PAIN
     Route: 048
  7. CYMBALTA [Concomitant]
     Indication: ANXIETY
     Route: 048
  8. CYMBALTA [Concomitant]
     Indication: PAIN
     Route: 048
  9. LORAZEPAM [Concomitant]
     Indication: ANXIETY
     Route: 048
  10. LORAZEPAM [Concomitant]
     Indication: INSOMNIA
     Route: 048
  11. AMBIEN [Concomitant]
     Indication: INSOMNIA
     Dosage: ONE EVERY NIGHT
     Route: 048
  12. METOCLOPRAMIDE [Concomitant]
     Indication: GASTROOESOPHAGEAL REFLUX DISEASE
     Route: 048

REACTIONS (5)
  - DYSPNOEA [None]
  - INCORRECT DRUG ADMINISTRATION RATE [None]
  - NEURALGIA [None]
  - PRODUCT QUALITY ISSUE [None]
  - SEDATION [None]
